FAERS Safety Report 8276420-4 (Version None)
Quarter: 2012Q2

REPORT INFORMATION
  Report Type: 
  Country: None (occurrence: None)
  Receive Date: 20120412
  Receipt Date: 20120404
  Transmission Date: 20120825
  Serious: Yes (Other)
  Sender: FDA-Public Use
  Company Number: US-BRISTOL-MYERS SQUIBB COMPANY-16501744

PATIENT
  Age: 18 Year
  Sex: Male
  Weight: 77 kg

DRUGS (2)
  1. ABILIFY [Suspect]
     Indication: BIPOLAR DISORDER
     Dosage: INITIALLY GIVEN 5MG THEN INCREASED TO 10MG THEN 15MG
     Dates: start: 20110201
  2. STRATTERA [Concomitant]

REACTIONS (4)
  - LOSS OF CONSCIOUSNESS [None]
  - SENSORY LOSS [None]
  - SUICIDAL IDEATION [None]
  - AMNESIA [None]
